FAERS Safety Report 8357672-9 (Version None)
Quarter: 2012Q2

REPORT INFORMATION
  Report Type: 
  Country: None (occurrence: None)
  Receive Date: 20120511
  Receipt Date: 20120501
  Transmission Date: 20120825
  Serious: Yes (Hospitalization)
  Sender: FDA-Public Use
  Company Number: 2012AP001284

PATIENT
  Age: 65 Year
  Sex: Male

DRUGS (2)
  1. TOPIRAMATE [Concomitant]
  2. OLANZAPINE [Suspect]
     Indication: SCHIZOPHRENIA
     Dosage: 3 TAB, QD, PO
     Route: 048
     Dates: start: 20120430, end: 20120430

REACTIONS (3)
  - DRY MOUTH [None]
  - NAUSEA [None]
  - TEMPORAL LOBE EPILEPSY [None]
